FAERS Safety Report 7959585-0 (Version None)
Quarter: 2011Q4

REPORT INFORMATION
  Report Type: 
  Country: None (occurrence: None)
  Receive Date: 20111206
  Receipt Date: 20111202
  Transmission Date: 20120403
  Serious: Yes (Other)
  Sender: FDA-Public Use
  Company Number: US-GLAXOSMITHKLINE-A0956418A

PATIENT
  Age: 51 Year
  Sex: Male

DRUGS (3)
  1. ALBUTEROL [Concomitant]
  2. ADVAIR DISKUS 100/50 [Concomitant]
  3. NICODERM CQ [Suspect]
     Indication: SMOKING CESSATION THERAPY
     Route: 062
     Dates: start: 20111130

REACTIONS (5)
  - ASTHMA [None]
  - EXPIRED DRUG ADMINISTERED [None]
  - BRONCHITIS [None]
  - COUGH [None]
  - DYSPNOEA [None]
